FAERS Safety Report 13760970 (Version 1)
Quarter: 2017Q3

REPORT INFORMATION
  Report Type: Spontaneous
  Country: US (occurrence: US)
  Receive Date: 20170717
  Receipt Date: 20170717
  Transmission Date: 20171127
  Serious: Yes (Other)
  Sender: FDA-Public Use
  Company Number: PHHY2017US098915

PATIENT
  Age: 35 Year
  Sex: Female

DRUGS (1)
  1. AMOXICILLIN. [Suspect]
     Active Substance: AMOXICILLIN
     Indication: TOOTH INFECTION
     Route: 065

REACTIONS (6)
  - Maternal exposure during pregnancy [Unknown]
  - Lymphadenopathy [Unknown]
  - Epstein-Barr virus infection [Unknown]
  - Drug-disease interaction [Unknown]
  - Infectious mononucleosis [Unknown]
  - Rash generalised [Recovered/Resolved]
